FAERS Safety Report 7630149-1 (Version None)
Quarter: 2011Q3

REPORT INFORMATION
  Report Type: 
  Country: None (occurrence: None)
  Receive Date: 20110722
  Receipt Date: 20110712
  Transmission Date: 20111222
  Serious: Yes (Hospitalization, Congenital Anomaly, Other)
  Sender: FDA-Public Use
  Company Number: US-PFIZER INC-2011159695

PATIENT
  Sex: Male
  Weight: 4.1 kg

DRUGS (1)
  1. ZOLOFT [Suspect]
     Indication: DEPRESSION
     Dosage: 50 MG, UNK
     Route: 064
     Dates: start: 20020204

REACTIONS (13)
  - MATERNAL EXPOSURE DURING PREGNANCY [None]
  - ATRIAL SEPTAL DEFECT [None]
  - PATENT DUCTUS ARTERIOSUS [None]
  - LEFT ATRIAL DILATATION [None]
  - RIGHT ATRIAL DILATATION [None]
  - CONGENITAL TORTICOLLIS [None]
  - CARDIOMEGALY [None]
  - HYPOTHYROIDISM [None]
  - CAESAREAN SECTION [None]
  - RIGHT VENTRICULAR HYPERTROPHY [None]
  - FOOT DEFORMITY [None]
  - BRACHYCEPHALY [None]
  - PLAGIOCEPHALY [None]
